FAERS Safety Report 5758778-0 (Version None)
Quarter: 2008Q2

REPORT INFORMATION
  Report Type: 
  Country: None (occurrence: None)
  Receive Date: 20080604
  Receipt Date: 20080527
  Transmission Date: 20081010
  Serious: Yes (Hospitalization)
  Sender: FDA-Public Use
  Company Number: BR-BAYER-BR-2005-018745

PATIENT
  Age: 59 Year
  Sex: Female

DRUGS (3)
  1. BETAFERON [Suspect]
     Indication: MULTIPLE SCLEROSIS
     Route: 058
     Dates: start: 20000101
  2. UNSPECIFIED DRUG [Concomitant]
     Indication: ANTIDEPRESSANT THERAPY
  3. GLUCOSAMINE [Concomitant]
     Indication: DRUG USE FOR UNKNOWN INDICATION
     Route: 048
     Dates: start: 20070101

REACTIONS (3)
  - MULTIPLE SCLEROSIS RELAPSE [None]
  - VISION BLURRED [None]
  - WEIGHT INCREASED [None]
